FAERS Safety Report 14945817 (Version 2)
Quarter: 2018Q2

REPORT INFORMATION
  Report Type: Report from Study
  Country: US (occurrence: US)
  Receive Date: 20180529
  Receipt Date: 20180531
  Transmission Date: 20180711
  Serious: Yes (Hospitalization)
  Sender: FDA-Public Use
  Company Number: US-ROCHE-2127318

PATIENT
  Age: 67 Year
  Sex: Male

DRUGS (1)
  1. OCREVUS [Suspect]
     Active Substance: OCRELIZUMAB
     Indication: PRIMARY PROGRESSIVE MULTIPLE SCLEROSIS
     Dosage: DAY 1 AND DAY 15, THEN 600 MG ONCE IN 6 MONTHS
     Route: 065
     Dates: start: 20180312

REACTIONS (5)
  - Incoherent [Not Recovered/Not Resolved]
  - Hypokinesia [Not Recovered/Not Resolved]
  - Delirium [Not Recovered/Not Resolved]
  - Pneumonia [Not Recovered/Not Resolved]
  - Depressed level of consciousness [Not Recovered/Not Resolved]

NARRATIVE: CASE EVENT DATE: 201804
